FAERS Safety Report 4292542-7 (Version None)
Quarter: 2004Q1

REPORT INFORMATION
  Report Type: 
  Country: None (occurrence: None)
  Receive Date: 20040126
  Receipt Date: 20030911
  Transmission Date: 20041129
  Serious: No
  Sender: FDA-Public Use
  Company Number: USA030946933

PATIENT

DRUGS (2)
  1. FORTEO [Suspect]
     Indication: BONE DENSITY DECREASED
     Dates: start: 20030612, end: 20030801
  2. FORTEO [Suspect]
     Indication: MULTIPLE FRACTURES
     Dates: start: 20030612, end: 20030801

REACTIONS (2)
  - MYALGIA [None]
  - RASH GENERALISED [None]
